FAERS Safety Report 5510158-9 (Version None)
Quarter: 2007Q4

REPORT INFORMATION
  Report Type: 
  Country: None (occurrence: None)
  Receive Date: 20071108
  Receipt Date: 20071107
  Transmission Date: 20080405
  Serious: Yes (Life-Threatening, Hospitalization, Other)
  Sender: FDA-Public Use
  Company Number: GB-BRISTOL-MYERS SQUIBB COMPANY-13972245

PATIENT
  Age: 58 Year
  Sex: Female

DRUGS (4)
  1. PRAVASTATIN SODIUM [Suspect]
     Indication: BLOOD CHOLESTEROL INCREASED
     Route: 048
     Dates: start: 20051206, end: 20070710
  2. LIPITOR [Suspect]
     Indication: BLOOD CHOLESTEROL INCREASED
     Route: 048
     Dates: start: 20061012, end: 20070717
  3. CETIRIZINE HCL [Concomitant]
     Dosage: 1 DOSAGEFORM = 10 UNSPECIFIED UNIT.
     Dates: start: 19990101
  4. MOMETASONE FUROATE [Concomitant]
     Dates: start: 19980101

REACTIONS (1)
  - PANCREATITIS ACUTE [None]
